APPROVED DRUG PRODUCT: DAPTOMYCIN
Active Ingredient: DAPTOMYCIN
Strength: 350MG/VIAL
Dosage Form/Route: POWDER;INTRAVENOUS
Application: N217630 | Product #001
Applicant: MAIA PHARMACEUTICALS INC
Approved: Nov 21, 2024 | RLD: Yes | RS: No | Type: DISCN